FAERS Safety Report 5464199-0 (Version None)
Quarter: 2007Q3

REPORT INFORMATION
  Report Type: 
  Country: None (occurrence: None)
  Receive Date: 20070921
  Receipt Date: 20070917
  Transmission Date: 20080115
  Serious: Yes (Hospitalization, Other)
  Sender: FDA-Public Use
  Company Number: AU-AVENTIS-200716233GDDC

PATIENT
  Age: 65 Year
  Sex: Male

DRUGS (5)
  1. LANTUS [Suspect]
     Route: 058
     Dates: start: 20060901
  2. AUTOPEN INSULIN INJECTION PEN [Suspect]
  3. ANTIHYPERTENSIVES [Concomitant]
  4. CHOLESTEROL- AND TRIGLYCERIDE REDUCERS [Concomitant]
  5. PANCREATIC ENZYMES [Concomitant]
     Dosage: DOSE QUANTITY: 4

REACTIONS (3)
  - ASTHENIA [None]
  - BLOOD GLUCOSE FLUCTUATION [None]
  - PNEUMONIA [None]
